FAERS Safety Report 16227846 (Version 2)
Quarter: 2019Q2

REPORT INFORMATION
  Report Type: Spontaneous
  Country: US (occurrence: US)
  Receive Date: 20190423
  Receipt Date: 20190606
  Transmission Date: 20190711
  Serious: No
  Sender: FDA-Public Use
  Company Number: US-PFIZER INC-2019165001

PATIENT
  Age: 47 Year
  Sex: Female

DRUGS (1)
  1. IBRANCE [Suspect]
     Active Substance: PALBOCICLIB
     Indication: BREAST CANCER FEMALE
     Dosage: 125 MG, CYCLIC (DAILY FOR THREE WEEKS, THEN REST ONE WEEK)
     Route: 048
     Dates: start: 201812

REACTIONS (10)
  - Skin lesion [Unknown]
  - Red blood cell count decreased [Unknown]
  - Stomatitis [Unknown]
  - Muscle spasms [Unknown]
  - Blood test abnormal [Unknown]
  - Tumour marker increased [Unknown]
  - Nausea [Unknown]
  - Diarrhoea [Unknown]
  - White blood cell count decreased [Unknown]
  - Fatigue [Unknown]
